FAERS Safety Report 4486453-1 (Version None)
Quarter: 2004Q4

REPORT INFORMATION
  Report Type: 
  Country: None (occurrence: None)
  Receive Date: 20041026
  Receipt Date: 20041026
  Transmission Date: 20050328
  Serious: Yes (Hospitalization)
  Sender: FDA-Public Use
  Company Number: None

PATIENT
  Age: 57 Year
  Sex: Female

DRUGS (2)
  1. METHADONE HCL [Suspect]
     Indication: NEUROPATHIC PAIN
     Dosage: 10 MG BID ORAL
     Route: 048
  2. METHADONE HCL [Suspect]
     Dosage: 2.5MG Q 1H PRN ORAL
     Route: 048

REACTIONS (4)
  - AMNESIA [None]
  - CONFUSIONAL STATE [None]
  - INCOHERENT [None]
  - MENTAL STATUS CHANGES [None]
